FAERS Safety Report 9629722 (Version 3)
Quarter: 2014Q1

REPORT INFORMATION
  Report Type: Report from Study
  Country: US (occurrence: US)
  Receive Date: 20131017
  Receipt Date: 20140227
  Transmission Date: 20141002
  Serious: Yes (Other)
  Sender: FDA-Public Use
  Company Number: US-JNJFOC-20131007046

PATIENT
  Age: 39 Year
  Sex: Male
  Weight: 126.55 kg

DRUGS (45)
  1. REMICADE [Suspect]
     Indication: CROHN^S DISEASE
     Route: 042
     Dates: start: 20120229
  2. REMICADE [Suspect]
     Indication: CROHN^S DISEASE
     Dosage: AMOUNT USED WAS 1400MG
     Route: 042
     Dates: start: 20140109
  3. REMICADE [Suspect]
     Indication: CROHN^S DISEASE
     Dosage: AMOUNT USED WAS 1300MG
     Route: 042
     Dates: start: 20131004
  4. REMICADE [Suspect]
     Indication: CROHN^S DISEASE
     Dosage: AMOUNT USED WAS 1100MG
     Route: 042
     Dates: start: 20130718
  5. REMICADE [Suspect]
     Indication: CROHN^S DISEASE
     Dosage: AMOUNT USED 800MG
     Route: 042
     Dates: start: 20130516
  6. REMICADE [Suspect]
     Indication: CROHN^S DISEASE
     Dosage: AMOUNT USED 800 MG
     Route: 042
     Dates: start: 20130321
  7. REMICADE [Suspect]
     Indication: CROHN^S DISEASE
     Dosage: AMOUNT USED WAS 800 MG
     Route: 042
     Dates: start: 20130124
  8. REMICADE [Suspect]
     Indication: CROHN^S DISEASE
     Dosage: AMOUNT USED 800 MG
     Route: 042
     Dates: start: 20121129
  9. REMICADE [Suspect]
     Indication: CROHN^S DISEASE
     Route: 042
     Dates: start: 2012
  10. REMICADE [Suspect]
     Indication: CROHN^S DISEASE
     Route: 042
     Dates: start: 20131004, end: 20131004
  11. REMICADE [Suspect]
     Indication: PSORIATIC ARTHROPATHY
     Dosage: AMOUNT USED 800MG
     Route: 042
     Dates: start: 20130516
  12. REMICADE [Suspect]
     Indication: PSORIATIC ARTHROPATHY
     Route: 042
     Dates: start: 20120229
  13. REMICADE [Suspect]
     Indication: PSORIATIC ARTHROPATHY
     Dosage: AMOUNT USED WAS 1400MG
     Route: 042
     Dates: start: 20140109
  14. REMICADE [Suspect]
     Indication: PSORIATIC ARTHROPATHY
     Dosage: AMOUNT USED WAS 1300MG
     Route: 042
     Dates: start: 20131004
  15. REMICADE [Suspect]
     Indication: PSORIATIC ARTHROPATHY
     Dosage: AMOUNT USED WAS 1100MG
     Route: 042
     Dates: start: 20130718
  16. REMICADE [Suspect]
     Indication: PSORIATIC ARTHROPATHY
     Route: 042
     Dates: start: 20131004, end: 20131004
  17. REMICADE [Suspect]
     Indication: PSORIATIC ARTHROPATHY
     Dosage: AMOUNT USED 800 MG
     Route: 042
     Dates: start: 20130321
  18. REMICADE [Suspect]
     Indication: PSORIATIC ARTHROPATHY
     Dosage: AMOUNT USED WAS 800 MG
     Route: 042
     Dates: start: 20130124
  19. REMICADE [Suspect]
     Indication: PSORIATIC ARTHROPATHY
     Dosage: AMOUNT USED 800 MG
     Route: 042
     Dates: start: 20121129
  20. REMICADE [Suspect]
     Indication: PSORIATIC ARTHROPATHY
     Route: 042
     Dates: start: 2012
  21. METHOTREXATE [Suspect]
     Indication: PSORIATIC ARTHROPATHY
     Route: 048
     Dates: start: 2012
  22. PREDNISONE [Suspect]
     Indication: PSORIATIC ARTHROPATHY
     Route: 048
     Dates: start: 201304
  23. ZYRTEC [Concomitant]
     Indication: HYPERSENSITIVITY
     Route: 065
  24. CALCIUM [Concomitant]
     Route: 065
  25. VITAMIN D [Concomitant]
     Route: 048
  26. FOLIC ACID [Concomitant]
     Indication: PSORIATIC ARTHROPATHY
     Route: 048
  27. MELOXICAM [Concomitant]
     Indication: PSORIATIC ARTHROPATHY
     Route: 048
  28. PENTASA [Concomitant]
     Indication: CROHN^S DISEASE
     Dosage: FOR 7 YEARS
     Route: 048
     Dates: start: 200803
  29. METHADONE [Concomitant]
     Indication: PSORIATIC ARTHROPATHY
     Route: 048
  30. METHADONE [Concomitant]
     Indication: PSORIATIC ARTHROPATHY
     Dosage: FOR ABOUT 3 YEARS
     Route: 048
     Dates: start: 2010
  31. METHADONE [Concomitant]
     Indication: PAIN
     Dosage: FOR ABOUT 3 YEARS
     Route: 048
     Dates: start: 2010
  32. METHADONE [Concomitant]
     Indication: PAIN
     Route: 048
  33. DILAUDID [Concomitant]
     Indication: PSORIATIC ARTHROPATHY
     Route: 048
     Dates: start: 2012
  34. DILAUDID [Concomitant]
     Indication: PAIN
     Route: 048
     Dates: start: 2012
  35. OXYCODONE [Concomitant]
     Indication: PSORIATIC ARTHROPATHY
     Dosage: 1-2 TABLETS EVERY 4-6 HOURS IF NEEDED MAXIMUM OF 6 TABS PER 24 HOURS
     Route: 048
  36. METFORMIN [Concomitant]
     Indication: TYPE 2 DIABETES MELLITUS
     Route: 048
  37. ATORVASTATIN [Concomitant]
     Indication: BLOOD CHOLESTEROL ABNORMAL
     Route: 048
  38. TIZANIDINE [Concomitant]
     Indication: PAIN
     Route: 048
  39. TIZANIDINE [Concomitant]
     Indication: PSORIATIC ARTHROPATHY
     Route: 048
  40. VITAMIN D3 [Concomitant]
     Route: 048
  41. FISH OIL [Concomitant]
     Indication: PSORIATIC ARTHROPATHY
     Route: 065
  42. COD LIVER OIL [Concomitant]
     Indication: PSORIATIC ARTHROPATHY
     Route: 065
  43. OMEGA 3 [Concomitant]
     Indication: PSORIATIC ARTHROPATHY
     Route: 065
  44. FUROSEMIDE [Concomitant]
     Indication: PSORIATIC ARTHROPATHY
     Route: 048
  45. OMEPRAZOLE [Concomitant]
     Indication: GASTROOESOPHAGEAL REFLUX DISEASE
     Route: 065

REACTIONS (6)
  - Nasal septum deviation [Not Recovered/Not Resolved]
  - Sinusitis [Recovering/Resolving]
  - Immunosuppression [Unknown]
  - Heart rate increased [Unknown]
  - Blood pressure increased [Unknown]
  - Arthritis [Unknown]
